FAERS Safety Report 5489635-5 (Version None)
Quarter: 2007Q4

REPORT INFORMATION
  Report Type: 
  Country: None (occurrence: None)
  Receive Date: 20071018
  Receipt Date: 20071012
  Transmission Date: 20080405
  Serious: Yes (Life-Threatening, Hospitalization, Other)
  Sender: FDA-Public Use
  Company Number: A0687778A

PATIENT
  Age: 46 Year
  Sex: Male

DRUGS (19)
  1. EPZICOM [Suspect]
     Indication: HIV INFECTION
     Route: 048
     Dates: start: 20070117, end: 20071009
  2. NORVIR [Suspect]
     Indication: HIV INFECTION
     Dosage: 100MG PER DAY
     Route: 048
     Dates: start: 20070117, end: 20071009
  3. BACTRIM [Suspect]
     Dates: start: 20071008, end: 20071009
  4. REYATAZ [Concomitant]
     Indication: HIV INFECTION
     Dosage: 300MG PER DAY
     Route: 048
     Dates: start: 20070117, end: 20071009
  5. WELLBUTRIN [Concomitant]
     Dates: start: 20040401
  6. VALTREX [Concomitant]
     Dates: start: 19960615
  7. TRAZODONE HCL [Concomitant]
     Dates: start: 19960615
  8. COENZYME Q10 [Concomitant]
     Dates: start: 20040615
  9. VITAMIN B COMPLEX CAP [Concomitant]
     Dates: start: 20040315
  10. FISH OIL [Concomitant]
     Dates: start: 20040715
  11. MULTI-VITAMIN [Concomitant]
     Dates: start: 20040715
  12. ASPIRIN [Concomitant]
     Dates: start: 20060401
  13. ZANTAC [Concomitant]
     Dates: start: 20060615
  14. NEURONTIN [Concomitant]
     Dates: start: 20070606
  15. VANCOMYCIN [Concomitant]
     Route: 042
     Dates: start: 20070927, end: 20071007
  16. CEFTRIAXONE [Concomitant]
     Dates: start: 20071006, end: 20071007
  17. VANCOMYCIN [Concomitant]
     Route: 048
     Dates: start: 20071011
  18. CIPROFLOXACIN [Concomitant]
     Dates: start: 20071009
  19. BACTRIM [Concomitant]
     Dates: start: 20070921, end: 20070928

REACTIONS (11)
  - DIARRHOEA [None]
  - DRUG HYPERSENSITIVITY [None]
  - FATIGUE [None]
  - HYPOTENSION [None]
  - MALAISE [None]
  - MYALGIA [None]
  - NAUSEA [None]
  - OLIGURIA [None]
  - PYREXIA [None]
  - RASH PRURITIC [None]
  - TACHYCARDIA [None]
